FAERS Safety Report 18691086 (Version 2)
Quarter: 2021Q1

REPORT INFORMATION
  Report Type: Spontaneous
  Country: US (occurrence: US)
  Receive Date: 20210101
  Receipt Date: 20210119
  Transmission Date: 20210419
  Serious: No
  Sender: FDA-Public Use
  Company Number: US-ASTRAZENECA-2020SF62640

PATIENT
  Age: 65 Year
  Sex: Female

DRUGS (1)
  1. BYDUREON BCISE [Suspect]
     Active Substance: EXENATIDE
     Dosage: UNKNOWN DOSE ONCE A WEEK
     Route: 065
     Dates: start: 202011

REACTIONS (4)
  - Device mechanical issue [Unknown]
  - Device leakage [Unknown]
  - Injection site mass [Recovered/Resolved with Sequelae]
  - Device delivery system issue [Unknown]
